FAERS Safety Report 4853751-9 (Version None)
Quarter: 2005Q4

REPORT INFORMATION
  Report Type: 
  Country: None (occurrence: None)
  Receive Date: 20051212
  Receipt Date: 20051130
  Transmission Date: 20060501
  Serious: Yes (Other)
  Sender: FDA-Public Use
  Company Number: US200511003332

PATIENT
  Age: 57 Year
  Sex: Female
  Weight: 74.2 kg

DRUGS (11)
  1. HUMATROPE [Suspect]
     Indication: ASTHENIA
     Dosage: 1.5 U, DAILY (1/D), SUBCUTANEOUS; 1 U, DAILY (1/D), SUBCUTANEOUS
     Route: 058
     Dates: start: 19990301
  2. L-THYROXIN  HENNING BERLIN (LEVOTHYROXINE SODIUM) [Concomitant]
  3. HYDROCORTISONE [Concomitant]
  4. ESTROGENS [Concomitant]
  5. MEDROXYPROGESTERONE [Concomitant]
  6. CALCIUM CARBONATE (CALCIUM CARBONATE) [Concomitant]
  7. VITAMIN E [Concomitant]
  8. BUDESONIDE [Concomitant]
  9. MULTIVIT (VITAMINS NOS) [Concomitant]
  10. ST. JOHN'S WORT (HYPERICUM PERFORATUM) [Concomitant]
  11. DHEA (PRASTERONE) [Concomitant]

REACTIONS (14)
  - BLOOD BILIRUBIN INCREASED [None]
  - BLOOD BILIRUBIN UNCONJUGATED INCREASED [None]
  - BLOOD LACTATE DEHYDROGENASE INCREASED [None]
  - BLOOD PRESSURE INCREASED [None]
  - DIPLOPIA [None]
  - DISEASE PROGRESSION [None]
  - DRUG TOXICITY [None]
  - EYELID PTOSIS [None]
  - HODGKIN'S DISEASE MIXED CELLULARITY STAGE III [None]
  - INSULIN-LIKE GROWTH FACTOR INCREASED [None]
  - MYOSITIS [None]
  - ORAL INFECTION [None]
  - STEM CELL TRANSPLANT [None]
  - TOOTH INFECTION [None]
